FAERS Safety Report 15828782 (Version 1)
Quarter: 2019Q1

REPORT INFORMATION
  Report Type: Spontaneous
  Country: US (occurrence: US)
  Receive Date: 20190115
  Receipt Date: 20190115
  Transmission Date: 20190417
  Serious: No
  Sender: FDA-Public Use
  Company Number: US-ALLERGAN-1755273US

PATIENT
  Age: 84 Year
  Sex: Female

DRUGS (3)
  1. LASIX [Concomitant]
     Active Substance: FUROSEMIDE
     Indication: HYPERTENSION
     Dosage: UNK
     Route: 048
  2. MURO [Concomitant]
     Indication: PRODUCT USED FOR UNKNOWN INDICATION
     Dosage: UNK
     Route: 047
     Dates: end: 2015
  3. RESTASIS [Suspect]
     Active Substance: CYCLOSPORINE
     Indication: DRY EYE
     Dosage: 2 GTT, BID
     Route: 047
     Dates: start: 20170911

REACTIONS (2)
  - Product container issue [Unknown]
  - Product dose omission [Unknown]

NARRATIVE: CASE EVENT DATE: 20170924
